FAERS Safety Report 13303186 (Version 1)
Quarter: 2017Q1

REPORT INFORMATION
  Report Type: Report from Study
  Country: ES (occurrence: ES)
  Receive Date: 20170307
  Receipt Date: 20170307
  Transmission Date: 20170428
  Serious: Yes (Hospitalization)
  Sender: FDA-Public Use
  Company Number: ES-BAYER-2017-039406

PATIENT
  Age: 65 Year
  Sex: Female

DRUGS (10)
  1. NOLOTIL [Concomitant]
     Active Substance: METAMIZOLE
     Dosage: 1 DF, TID
  2. OMEPRAZOL [Concomitant]
     Active Substance: OMEPRAZOLE
     Dosage: 1 DF, QD
     Route: 048
  3. LORMETAZEPAM [Concomitant]
     Active Substance: LORMETAZEPAM
     Dosage: 1 DF, QD
  4. ADIRO 100 MG GASTRO-RESISTANT TABLET,30TABLET [Suspect]
     Active Substance: ASPIRIN
     Dosage: 100 MG, QD
     Route: 048
     Dates: start: 201608
  5. LEXATIN [Concomitant]
     Active Substance: BROMAZEPAM
     Dosage: 1 DF, QD
  6. HIBOR [Interacting]
     Active Substance: BEMIPARIN SODIUM
     Indication: THROMBOSIS PROPHYLAXIS
     Dosage: 7500 IU, QD
     Route: 058
     Dates: start: 20160810, end: 20161219
  7. ALOPURINOL [Concomitant]
     Active Substance: ALLOPURINOL
     Dosage: 20 MG, QD
     Route: 048
  8. EUTIROX [Concomitant]
     Active Substance: LEVOTHYROXINE SODIUM
     Indication: HYPOTHYROIDISM
     Dosage: 50 ?G, QD
     Route: 048
     Dates: start: 20090114
  9. ALOPURINOL [Concomitant]
     Active Substance: ALLOPURINOL
     Dosage: 300 MG, QD
     Route: 048
     Dates: start: 2016
  10. PARACETAMOL [Concomitant]
     Active Substance: ACETAMINOPHEN
     Dosage: 1 DF, TID

REACTIONS (1)
  - Muscle haemorrhage [Recovered/Resolved]

NARRATIVE: CASE EVENT DATE: 20161218
